FAERS Safety Report 9553770 (Version 1)
Quarter: 2013Q3

REPORT INFORMATION
  Report Type: Spontaneous
  Country: US (occurrence: None)
  Receive Date: 20130913
  Receipt Date: 20130913
  Transmission Date: 20140515
  Serious: Yes (Death)
  Sender: FDA-Public Use
  Company Number: E7389-04086-SPO-US

PATIENT
  Sex: Female

DRUGS (3)
  1. HALAVEN [Suspect]
     Indication: BREAST CANCER
     Route: 042
  2. GEMCITABINE (GEMCITABINE) [Concomitant]
  3. CARBOPLATIN (CARBOPLATIN) [Concomitant]

REACTIONS (2)
  - Malignant neoplasm progression [None]
  - Platelet count decreased [None]
